FAERS Safety Report 11403092 (Version 1)
Quarter: 2015Q3

REPORT INFORMATION
  Report Type: Spontaneous
  Country: BR (occurrence: BR)
  Receive Date: 20150821
  Receipt Date: 20150821
  Transmission Date: 20151125
  Serious: Yes (Hospitalization)
  Sender: FDA-Public Use
  Company Number: BR-ASTRAZENECA-2015SE78854

PATIENT
  Age: 39 Year
  Sex: Female

DRUGS (8)
  1. SELOZOK [Suspect]
     Active Substance: METOPROLOL SUCCINATE
     Indication: BLOOD PRESSURE ABNORMAL
     Route: 048
     Dates: start: 2011, end: 2011
  2. ANCORON [Suspect]
     Active Substance: AMIODARONE HYDROCHLORIDE
     Indication: PROPHYLAXIS
     Dosage: 20MG, FROM MONDAY TO FRIDAY, FIVE TIMES A WEEK
     Route: 048
     Dates: start: 201503
  3. SELOZOK [Suspect]
     Active Substance: METOPROLOL SUCCINATE
     Indication: ARRHYTHMIA
     Route: 048
     Dates: start: 2010, end: 2011
  4. SELOZOK [Suspect]
     Active Substance: METOPROLOL SUCCINATE
     Indication: BLOOD PRESSURE ABNORMAL
     Route: 048
     Dates: start: 2011
  5. MAREVAN [Concomitant]
     Active Substance: WARFARIN SODIUM
     Indication: PROPHYLAXIS
     Dosage: TWO TIMES A DAY
     Route: 048
     Dates: start: 2010
  6. SELOZOK [Suspect]
     Active Substance: METOPROLOL SUCCINATE
     Indication: BLOOD PRESSURE ABNORMAL
     Route: 048
     Dates: start: 2010, end: 2011
  7. SELOZOK [Suspect]
     Active Substance: METOPROLOL SUCCINATE
     Indication: ARRHYTHMIA
     Route: 048
     Dates: start: 2011, end: 2011
  8. SELOZOK [Suspect]
     Active Substance: METOPROLOL SUCCINATE
     Indication: ARRHYTHMIA
     Route: 048
     Dates: start: 2011

REACTIONS (8)
  - Blood pressure increased [Recovered/Resolved]
  - Oropharyngeal pain [Recovering/Resolving]
  - Off label use [Not Recovered/Not Resolved]
  - Blood pressure decreased [Recovered/Resolved]
  - Malaise [Recovering/Resolving]
  - Chest discomfort [Recovering/Resolving]
  - Arrhythmia [Recovered/Resolved]
  - Intentional product misuse [Not Recovered/Not Resolved]

NARRATIVE: CASE EVENT DATE: 2010
